FAERS Safety Report 18135306 (Version 1)
Quarter: 2020Q3

REPORT INFORMATION
  Report Type: Spontaneous
  Country: US (occurrence: US)
  Receive Date: 20200811
  Receipt Date: 20200811
  Transmission Date: 20201103
  Serious: Yes (Other)
  Sender: FDA-Public Use
  Company Number: None

PATIENT
  Age: 34 Year
  Sex: Male
  Weight: 68.8 kg

DRUGS (11)
  1. ATROPINE. [Suspect]
     Active Substance: ATROPINE
  2. VALBENAZINE [Suspect]
     Active Substance: VALBENAZINE
     Indication: TARDIVE DYSKINESIA
     Route: 048
     Dates: start: 20200204
  3. ATROPINE OP SOLN (SL FOR SIALORRHEA) [Concomitant]
     Dates: start: 20200628
  4. DOCUSATE SODIUM. [Concomitant]
     Active Substance: DOCUSATE SODIUM
     Dates: start: 20200628
  5. CLOZAPINE. [Suspect]
     Active Substance: CLOZAPINE
     Dates: start: 20190628
  6. MULTIVITAMIN [Concomitant]
     Active Substance: VITAMINS
     Dates: start: 20200309
  7. ACETAMINOPHEN. [Concomitant]
     Active Substance: ACETAMINOPHEN
     Dates: start: 20200129
  8. VALBENAZINE [Suspect]
     Active Substance: VALBENAZINE
     Indication: TARDIVE DYSKINESIA
     Route: 048
     Dates: start: 20200128, end: 20200203
  9. PANTROPRAZOLE [Concomitant]
     Dates: start: 20200131
  10. PROPRANOLOL [Suspect]
     Active Substance: PROPRANOLOL HYDROCHLORIDE
     Dates: start: 20200302
  11. FISH OIL [Concomitant]
     Active Substance: FISH OIL
     Dates: start: 20200309

REACTIONS (7)
  - Abnormal behaviour [None]
  - Haemodynamic instability [None]
  - Anxiety [None]
  - Electrocardiogram QT prolonged [None]
  - Sinus tachycardia [None]
  - Refusal of treatment by patient [None]
  - Intentional dose omission [None]

NARRATIVE: CASE EVENT DATE: 20200205
